FAERS Safety Report 9125652 (Version 1)
Quarter: 2013Q1

REPORT INFORMATION
  Report Type: Spontaneous
  Country: ES (occurrence: ES)
  Receive Date: 20130121
  Receipt Date: 20130121
  Transmission Date: 20140127
  Serious: Yes (Hospitalization)
  Sender: FDA-Public Use
  Company Number: ES-009507513-1301ESP007389

PATIENT
  Age: 81 Year
  Sex: Male

DRUGS (2)
  1. ADROVANCE [Suspect]
     Dosage: 1 TABLET, QD
     Route: 048
     Dates: start: 20120301, end: 20120521
  2. IBUPROFEN [Suspect]
     Dosage: 1800 MG, QD
     Route: 048
     Dates: start: 20120301, end: 20120517

REACTIONS (1)
  - Upper gastrointestinal haemorrhage [Recovered/Resolved]
